FAERS Safety Report 16592198 (Version 1)
Quarter: 2019Q3

REPORT INFORMATION
  Report Type: Spontaneous
  Country: FR (occurrence: FR)
  Receive Date: 20190718
  Receipt Date: 20190718
  Transmission Date: 20191004
  Serious: Yes (Other)
  Sender: FDA-Public Use
  Company Number: FR-BRISTOL-MYERS SQUIBB COMPANY-BMS-2019-068984

PATIENT
  Age: 46 Year
  Sex: Male
  Weight: 76 kg

DRUGS (7)
  1. HYDROXYZINE [Suspect]
     Active Substance: HYDROXYZINE HYDROCHLORIDE
     Indication: PREMEDICATION
     Dosage: 100 MILLIGRAM, TOTAL
     Route: 041
     Dates: start: 20190527, end: 20190527
  2. POLARAMINE [Suspect]
     Active Substance: DEXCHLORPHENIRAMINE MALEATE
     Indication: PREMEDICATION
     Dosage: 5 MILLIGRAM, TOTAL
     Route: 041
     Dates: start: 20190527, end: 20190527
  3. LEVOFOLINATE DE CALCIUM [Suspect]
     Active Substance: LEVOLEUCOVORIN CALCIUM
     Indication: PROPHYLAXIS
     Dosage: 400 MILLIGRAM, TOTAL
     Route: 041
     Dates: start: 20190527, end: 20190527
  4. ONDANSETRON [Suspect]
     Active Substance: ONDANSETRON
     Indication: PREMEDICATION
     Dosage: 8 MILLIGRAM, TOTAL
     Route: 041
     Dates: start: 20190527, end: 20190527
  5. OXALIPLATINE KABI [Suspect]
     Active Substance: OXALIPLATIN
     Indication: COLON CANCER
     Dosage: 240 MILLIGRAM, TOTAL
     Route: 041
     Dates: start: 20190527, end: 20190527
  6. OPDIVO [Suspect]
     Active Substance: NIVOLUMAB
     Indication: COLON CANCER
     Dosage: 240 MILLIGRAM, TOTAL
     Route: 041
     Dates: start: 20190527, end: 20190527
  7. AVASTIN [Suspect]
     Active Substance: BEVACIZUMAB
     Indication: COLON CANCER
     Dosage: 380 MILLIGRAM, TOTAL
     Route: 041
     Dates: start: 20190527, end: 20190527

REACTIONS (4)
  - Hypotension [Recovered/Resolved]
  - Nausea [Recovered/Resolved]
  - Rash [Recovered/Resolved]
  - Throat tightness [Recovered/Resolved]

NARRATIVE: CASE EVENT DATE: 20190527
